FAERS Safety Report 13500117 (Version 1)
Quarter: 2017Q2

REPORT INFORMATION
  Report Type: Report from Study
  Country: US (occurrence: US)
  Receive Date: 20170501
  Receipt Date: 20170501
  Transmission Date: 20170830
  Serious: Yes (Other)
  Sender: FDA-Public Use
  Company Number: US-ASTELLAS-2017US015927

PATIENT
  Age: 81 Year
  Sex: Male

DRUGS (2)
  1. ERLOTINIB [Suspect]
     Active Substance: ERLOTINIB
     Indication: LUNG CANCER METASTATIC
     Route: 048
     Dates: start: 201703, end: 20170406
  2. ERLOTINIB [Suspect]
     Active Substance: ERLOTINIB
     Route: 048
     Dates: start: 20170416

REACTIONS (9)
  - Diarrhoea [Recovered/Resolved]
  - Dyspepsia [Not Recovered/Not Resolved]
  - Eye irritation [Recovering/Resolving]
  - Nausea [Not Recovered/Not Resolved]
  - Blister [Recovered/Resolved]
  - Visual impairment [Recovering/Resolving]
  - Dysphagia [Unknown]
  - Asthenia [Unknown]
  - Erythema [Recovered/Resolved]

NARRATIVE: CASE EVENT DATE: 2017
